FAERS Safety Report 5242571-1 (Version None)
Quarter: 2007Q1

REPORT INFORMATION
  Report Type: 
  Country: None (occurrence: None)
  Receive Date: 20061201
  Receipt Date: 20060803
  Transmission Date: 20070707
  Serious: No
  Sender: FDA-Public Use
  Company Number: 2006PV011241

PATIENT
  Age: 54 Year
  Sex: Male
  Weight: 68.0396 kg

DRUGS (4)
  1. BYETTA [Suspect]
     Indication: DIABETES MELLITUS NON-INSULIN-DEPENDENT
     Dosage: 10 MCG BID SC ; 5 MCG BID SC
     Route: 058
     Dates: start: 20050901, end: 20051001
  2. BYETTA [Suspect]
     Indication: DIABETES MELLITUS NON-INSULIN-DEPENDENT
     Dosage: 10 MCG BID SC ; 5 MCG BID SC
     Route: 058
     Dates: start: 20051001
  3. GLUCOTROL XL [Concomitant]
  4. METFORMIN [Concomitant]

REACTIONS (7)
  - DIZZINESS [None]
  - DYSPEPSIA [None]
  - FATIGUE [None]
  - INFLUENZA LIKE ILLNESS [None]
  - MUSCLE RIGIDITY [None]
  - MYALGIA [None]
  - WEIGHT DECREASED [None]
